FAERS Safety Report 8899898 (Version 3)
Quarter: 2013Q1

REPORT INFORMATION
  Report Type: Spontaneous
  Country: US (occurrence: US)
  Receive Date: 20121109
  Receipt Date: 20130123
  Transmission Date: 20140127
  Serious: Yes (Hospitalization, Other)
  Sender: FDA-Public Use
  Company Number: PHEH2012US021776

PATIENT
  Sex: Female

DRUGS (1)
  1. DIOVAN HCT [Suspect]
     Dosage: (160 MG AND 12.5 MG), UNK

REACTIONS (3)
  - Arthritis [Unknown]
  - Muscular weakness [Unknown]
  - Stress [Unknown]
